FAERS Safety Report 9726537 (Version 5)
Quarter: 2016Q3

REPORT INFORMATION
  Report Type: Spontaneous
  Country: US (occurrence: US)
  Receive Date: 20131203
  Receipt Date: 20160928
  Transmission Date: 20161109
  Serious: Yes (Death, Hospitalization, Other)
  Sender: FDA-Public Use
  Company Number: US-GLAXOSMITHKLINE-A1037194A

PATIENT
  Age: 50 Year
  Sex: Female

DRUGS (9)
  1. FLOLAN [Suspect]
     Active Substance: EPOPROSTENOL SODIUM
     Dosage: 44.6 DF, CO
     Route: 042
  2. FLOLAN [Suspect]
     Active Substance: EPOPROSTENOL SODIUM
     Dosage: UNK
     Dates: start: 20060923
  3. FLOLAN [Suspect]
     Active Substance: EPOPROSTENOL SODIUM
     Dosage: 45.95 NG/KG/MIN
     Dates: start: 20060923
  4. ADCIRCA [Suspect]
     Active Substance: TADALAFIL
     Indication: PRODUCT USED FOR UNKNOWN INDICATION
     Route: 065
     Dates: end: 201309
  5. FLOLAN [Suspect]
     Active Substance: EPOPROSTENOL SODIUM
     Indication: PULMONARY HYPERTENSION
     Dosage: UNK
     Dates: start: 20060923
  6. COUMADIN [Concomitant]
     Active Substance: WARFARIN SODIUM
  7. LETAIRIS [Concomitant]
     Active Substance: AMBRISENTAN
  8. FLOLAN [Suspect]
     Active Substance: EPOPROSTENOL SODIUM
     Indication: PULMONARY HYPERTENSION
     Dosage: UNK
  9. FLOLAN [Suspect]
     Active Substance: EPOPROSTENOL SODIUM
     Indication: COR PULMONALE CHRONIC
     Dosage: CONCENTRATION: 60,000 NG/MLVIAL STRENGTH: 1.5 MGPUMP RATE: 54 ML/DAY
     Route: 065
     Dates: start: 20060923

REACTIONS (14)
  - Asthenia [Unknown]
  - Back pain [Unknown]
  - Dyspnoea [Unknown]
  - Feeling abnormal [Unknown]
  - Gastrointestinal disorder [Unknown]
  - Device malfunction [Unknown]
  - Fluid retention [Unknown]
  - Insomnia [Unknown]
  - Medical device removal [Unknown]
  - Arthralgia [Unknown]
  - Vision blurred [Unknown]
  - Death [Fatal]
  - Swelling [Not Recovered/Not Resolved]
  - Underdose [Unknown]

NARRATIVE: CASE EVENT DATE: 201307
